FAERS Safety Report 25825613 (Version 1)
Quarter: 2025Q3

REPORT INFORMATION
  Report Type: Report from Study
  Country: CO (occurrence: CO)
  Receive Date: 20250919
  Receipt Date: 20250919
  Transmission Date: 20251020
  Serious: Yes (Hospitalization)
  Sender: ABBVIE
  Company Number: CO-ABBVIE-6435257

PATIENT
  Age: 64 Year
  Sex: Male

DRUGS (1)
  1. SKYRIZI [Suspect]
     Active Substance: RISANKIZUMAB-RZAA
     Indication: Psoriasis
     Dosage: FORM STRENGTH: 150MG
     Route: 058
     Dates: start: 20240105

REACTIONS (7)
  - Femur fracture [Recovering/Resolving]
  - Dry skin [Unknown]
  - Acne [Unknown]
  - Psoriasis [Unknown]
  - Fall [Unknown]
  - Mobility decreased [Unknown]
  - Procedural pain [Unknown]

NARRATIVE: CASE EVENT DATE: 20250822
